FAERS Safety Report 6212553-1 (Version None)
Quarter: 2009Q2

REPORT INFORMATION
  Report Type: 
  Country: None (occurrence: None)
  Receive Date: 20090529
  Receipt Date: 20090518
  Transmission Date: 20091009
  Serious: Yes (Hospitalization)
  Sender: FDA-Public Use
  Company Number: 1000003730

PATIENT
  Age: 15 Year
  Sex: Male
  Weight: 57 kg

DRUGS (2)
  1. ESCITALOPRAM [Suspect]
     Indication: DEPRESSION
     Dosage: 5-20 MG/DAY, ORAL
     Route: 048
     Dates: start: 20080701, end: 20080731
  2. ESCITALOPRAM [Suspect]
     Indication: DEPRESSION
     Dosage: 20 MG (20 MG, 1 IN 1 D), ORAL
     Route: 048
     Dates: start: 20080801, end: 20081229

REACTIONS (2)
  - DIABETES MELLITUS [None]
  - WEIGHT DECREASED [None]
